FAERS Safety Report 4708742-5 (Version None)
Quarter: 2005Q3

REPORT INFORMATION
  Report Type: 
  Country: None (occurrence: None)
  Receive Date: 20050707
  Receipt Date: 20050627
  Transmission Date: 20060218
  Serious: Yes (Life-Threatening, Hospitalization, Other)
  Sender: FDA-Public Use
  Company Number: GB-BRISTOL-MYERS SQUIBB COMPANY-13025028

PATIENT
  Age: 77 Year
  Sex: Male

DRUGS (9)
  1. METFORMIN HCL [Suspect]
     Indication: DIABETES MELLITUS
     Route: 048
     Dates: end: 20050408
  2. FRUSEMIDE [Suspect]
     Route: 048
  3. TAZOCIN [Suspect]
  4. ASPIRIN [Concomitant]
     Route: 048
  5. SIMVASTATIN [Concomitant]
     Route: 048
  6. LANSOPRAZOLE [Concomitant]
  7. THIAMINE [Concomitant]
  8. LATANOPROST [Concomitant]
  9. TIMOPTIC [Concomitant]

REACTIONS (3)
  - ACIDOSIS [None]
  - BLOOD POTASSIUM INCREASED [None]
  - RENAL FAILURE [None]
